FAERS Safety Report 17747455 (Version 1)
Quarter: 2020Q2

REPORT INFORMATION
  Report Type: Spontaneous
  Country: US (occurrence: US)
  Receive Date: 20200505
  Receipt Date: 20200505
  Transmission Date: 20200714
  Serious: Yes (Hospitalization, Other)
  Sender: FDA-Public Use
  Company Number: US-GLAXOSMITHKLINE-US2020GSK072933

PATIENT
  Age: 13 Year
  Sex: Female

DRUGS (2)
  1. SERTRALINE [Interacting]
     Active Substance: SERTRALINE HYDROCHLORIDE
     Indication: PRODUCT USED FOR UNKNOWN INDICATION
     Dosage: 50 MG 13 PILLLS
  2. LAMOTRIGINE. [Suspect]
     Active Substance: LAMOTRIGINE
     Indication: PRODUCT USED FOR UNKNOWN INDICATION
     Dosage: 100 MG, 13 PILLS

REACTIONS (6)
  - Drug interaction [Recovered/Resolved]
  - Intentional overdose [Unknown]
  - False positive investigation result [Recovered/Resolved]
  - Unresponsive to stimuli [Recovered/Resolved]
  - Drug screen positive [Recovered/Resolved]
  - Suicide attempt [Recovered/Resolved]
